APPROVED DRUG PRODUCT: CEFMAX
Active Ingredient: CEFMENOXIME HYDROCHLORIDE
Strength: EQ 2GM BASE/VIAL
Dosage Form/Route: INJECTABLE;INJECTION
Application: N050571 | Product #003
Applicant: TAP PHARMACEUTICAL PRODUCTS INC
Approved: Dec 30, 1987 | RLD: No | RS: No | Type: DISCN